FAERS Safety Report 8457705-5 (Version None)
Quarter: 2012Q2

REPORT INFORMATION
  Report Type: 
  Country: None (occurrence: None)
  Receive Date: 20120618
  Receipt Date: 20120618
  Transmission Date: 20120825
  Serious: No
  Sender: FDA-Public Use
  Company Number: None

PATIENT
  Sex: Male

DRUGS (1)
  1. REBIF [Suspect]
     Indication: MULTIPLE SCLEROSIS
     Dosage: 44MCG 3 TIMES/WEEK SQ
     Route: 058
     Dates: start: 20120525

REACTIONS (2)
  - NO THERAPEUTIC RESPONSE [None]
  - PRURITUS [None]
